FAERS Safety Report 7244479-9 (Version None)
Quarter: 2011Q1

REPORT INFORMATION
  Report Type: 
  Country: None (occurrence: None)
  Receive Date: 20110125
  Receipt Date: 20110118
  Transmission Date: 20110831
  Serious: Yes (Other)
  Sender: FDA-Public Use
  Company Number: US-PFIZER INC-2011012763

PATIENT
  Age: 85 Year
  Sex: Female

DRUGS (2)
  1. LYRICA [Suspect]
     Indication: LUMBAR SPINAL STENOSIS
  2. LYRICA [Suspect]
     Indication: CERVICAL SPINAL STENOSIS
     Dosage: UNK

REACTIONS (5)
  - NAUSEA [None]
  - SOMNOLENCE [None]
  - BALANCE DISORDER [None]
  - FALL [None]
  - DIZZINESS [None]
